FAERS Safety Report 6190238-8 (Version None)
Quarter: 2009Q2

REPORT INFORMATION
  Report Type: 
  Country: None (occurrence: None)
  Receive Date: 20090513
  Receipt Date: 20090513
  Transmission Date: 20091009
  Serious: Yes (Other)
  Sender: FDA-Public Use
  Company Number: None

PATIENT
  Age: 73 Year
  Sex: Female
  Weight: 92.5338 kg

DRUGS (2)
  1. CAMPTOSAR [Suspect]
     Indication: LUNG NEOPLASM MALIGNANT
     Dosage: 117 MG EVERY 4 WEEKS IV DRIP
     Route: 041
     Dates: start: 20090506, end: 20090506
  2. CISPLATIN [Suspect]
     Dosage: 117 MG EVERY 4 WEEKS IV DRIP
     Route: 041

REACTIONS (1)
  - FLUID REPLACEMENT [None]
